FAERS Safety Report 24793142 (Version 1)
Quarter: 2024Q4

REPORT INFORMATION
  Report Type: Spontaneous
  Country: CA (occurrence: CA)
  Receive Date: 20241231
  Receipt Date: 20241231
  Transmission Date: 20250114
  Serious: Yes (Hospitalization)
  Sender: TEVA
  Company Number: CA-TEVA-VS-3280255

PATIENT
  Age: 11 Day
  Sex: Female
  Weight: 2 kg

DRUGS (1)
  1. MORPHINE [Suspect]
     Active Substance: MORPHINE
     Indication: Product used for unknown indication
     Dosage: DOSE FORM: NOT SPECIFIED
     Route: 065

REACTIONS (6)
  - Tachypnoea [Unknown]
  - Congenital knee dislocation [Unknown]
  - Growth disorder [Unknown]
  - Drug withdrawal syndrome neonatal [Unknown]
  - Neonatal pneumonia [Unknown]
  - Diarrhoea [Unknown]
